FAERS Safety Report 6277833-2 (Version None)
Quarter: 2009Q3

REPORT INFORMATION
  Report Type: 
  Country: None (occurrence: None)
  Receive Date: 20090717
  Receipt Date: 20090717
  Transmission Date: 20100115
  Serious: Yes (Other)
  Sender: FDA-Public Use
  Company Number: None

PATIENT
  Sex: Male
  Weight: 86.1834 kg

DRUGS (1)
  1. SIMCOR [Suspect]
     Indication: BLOOD CHOLESTEROL
     Dosage: 1000-20 1 TAB DAILY PO
     Route: 048
     Dates: start: 20090606, end: 20090705

REACTIONS (3)
  - FEAR [None]
  - HEART RATE INCREASED [None]
  - PALPITATIONS [None]
